FAERS Safety Report 5829280-2 (Version None)
Quarter: 2008Q3

REPORT INFORMATION
  Report Type: 
  Country: None (occurrence: None)
  Receive Date: 20080731
  Receipt Date: 20080725
  Transmission Date: 20090109
  Serious: No
  Sender: FDA-Public Use
  Company Number: US-BOEHRINGER INGELHEIM GMBH, GERMANY-2008-BP-10615BP

PATIENT
  Sex: Female

DRUGS (13)
  1. SPIRIVA [Suspect]
     Indication: CHRONIC OBSTRUCTIVE PULMONARY DISEASE
  2. SPIRIVA [Suspect]
     Indication: BRONCHIECTASIS
  3. ADVAIR DISKUS 100/50 [Concomitant]
     Indication: DYSPNOEA
  4. COMBIVENT [Concomitant]
     Indication: DYSPNOEA
  5. THYROID TAB [Concomitant]
  6. DUONAH [Concomitant]
  7. TOBI [Concomitant]
  8. FOLIC ACID [Concomitant]
  9. MULTI-VITAMIN [Concomitant]
  10. FLUCONAZOLE [Concomitant]
  11. CLOTRIMAZOLE [Concomitant]
  12. ANTIBIOTICS [Concomitant]
  13. IRI 19 [Concomitant]

REACTIONS (1)
  - DRUG INEFFECTIVE [None]
